FAERS Safety Report 8173038-9 (Version None)
Quarter: 2012Q1

REPORT INFORMATION
  Report Type: 
  Country: None (occurrence: None)
  Receive Date: 20120223
  Receipt Date: 20120209
  Transmission Date: 20120608
  Serious: Yes (Hospitalization)
  Sender: FDA-Public Use
  Company Number: 2012PL000027

PATIENT
  Age: 83 Year
  Sex: Female
  Weight: 49.4421 kg

DRUGS (7)
  1. LOTRONEX [Suspect]
  2. PINDOLOL [Concomitant]
  3. ZOCOR [Concomitant]
  4. PREDNISONE [Concomitant]
  5. ASPIRIN [Concomitant]
  6. LOTRONEX [Suspect]
     Indication: IRRITABLE BOWEL SYNDROME
     Dosage: 0.5 MG; BIW
     Dates: start: 20120101
  7. PLAVIX [Concomitant]

REACTIONS (6)
  - GASTROINTESTINAL HAEMORRHAGE [None]
  - GASTRITIS [None]
  - CEREBROVASCULAR ACCIDENT [None]
  - DEFAECATION URGENCY [None]
  - HAEMORRHOIDAL HAEMORRHAGE [None]
  - DRUG INEFFECTIVE [None]
